FAERS Safety Report 8225589-6 (Version None)
Quarter: 2012Q1

REPORT INFORMATION
  Report Type: 
  Country: None (occurrence: None)
  Receive Date: 20120321
  Receipt Date: 20120316
  Transmission Date: 20120608
  Serious: Yes (Death, Hospitalization, Other)
  Sender: FDA-Public Use
  Company Number: PHHY2012JP023941

PATIENT
  Age: 75 Year
  Sex: Male

DRUGS (5)
  1. METHOTREXATE [Suspect]
     Indication: RHEUMATOID ARTHRITIS
     Dosage: 10 MG, QW
  2. PREDNISOLONE [Suspect]
     Dosage: 30 MG, PER DAY
     Dates: start: 20090201
  3. PREDNISOLONE [Suspect]
     Dosage: 40 MG, PER DAY
  4. PREDNISOLONE [Suspect]
     Dosage: 25 MG, PER DAY
     Dates: start: 20090530
  5. PREDNISOLONE [Suspect]
     Indication: RHEUMATOID ARTHRITIS
     Dosage: 5 MG, DAY

REACTIONS (13)
  - HYPOALBUMINAEMIA [None]
  - CRYPTOSPORIDIOSIS INFECTION [None]
  - RESPIRATORY FAILURE [None]
  - LUMBAR VERTEBRAL FRACTURE [None]
  - PNEUMONIA ASPIRATION [None]
  - COMPRESSION FRACTURE [None]
  - KLEBSIELLA TEST POSITIVE [None]
  - BRONCHITIS [None]
  - PLEURAL EFFUSION [None]
  - PSEUDOMONAS TEST POSITIVE [None]
  - TRICHOSPORON INFECTION [None]
  - PNEUMONIA CRYPTOCOCCAL [None]
  - ORGANISING PNEUMONIA [None]
